FAERS Safety Report 20622440 (Version 2)
Quarter: 2022Q2

REPORT INFORMATION
  Report Type: Spontaneous
  Country: US (occurrence: None)
  Receive Date: 20220322
  Receipt Date: 20220506
  Transmission Date: 20220721
  Serious: Yes (Hospitalization, Other)
  Sender: FDA-Public Use
  Company Number: 2022A116869

PATIENT
  Age: 407 Month
  Sex: Male

DRUGS (1)
  1. EVUSHELD [Suspect]
     Active Substance: CILGAVIMAB\TIXAGEVIMAB
     Indication: Vasculitis
     Route: 030
     Dates: start: 20220225

REACTIONS (3)
  - Myocarditis [Recovered/Resolved]
  - Abdominal discomfort [Unknown]
  - Weight decreased [Unknown]

NARRATIVE: CASE EVENT DATE: 20220201
